FAERS Safety Report 20112070 (Version 1)
Quarter: 2021Q4

REPORT INFORMATION
  Report Type: Spontaneous
  Country: US (occurrence: US)
  Receive Date: 20211125
  Receipt Date: 20211125
  Transmission Date: 20220304
  Serious: No
  Sender: FDA-Public Use
  Company Number: US-JNJFOC-20211119150

PATIENT

DRUGS (1)
  1. TYLENOL [Suspect]
     Active Substance: ACETAMINOPHEN
     Indication: Pain
     Dosage: TYLENOL DOESNT HELP THE PAIN, UNLESS PATIENT TAKE SEVERAL (3-4) AT ONE TIME.
     Route: 065

REACTIONS (1)
  - Drug ineffective [Unknown]
